FAERS Safety Report 9512053 (Version 2)
Quarter: 2013Q4

REPORT INFORMATION
  Report Type: Spontaneous
  Country: US (occurrence: US)
  Receive Date: 20130910
  Receipt Date: 20131025
  Transmission Date: 20140711
  Serious: Yes (Other)
  Sender: FDA-Public Use
  Company Number: US-UCBSA-096689

PATIENT
  Age: 43 Year
  Sex: Female
  Weight: 86.18 kg

DRUGS (9)
  1. CIMZIA [Suspect]
     Indication: CROHN^S DISEASE
     Dates: start: 20090216
  2. ZYRTEC [Concomitant]
     Indication: SEASONAL ALLERGY
  3. MICROGESTIN FE [Concomitant]
     Indication: POLYCYSTIC OVARIES
     Dosage: DOSE: 1.5/30
  4. SPIRONOLACTONE [Concomitant]
     Indication: POLYCYSTIC OVARIES
  5. EFFEXOR [Concomitant]
     Indication: DEPRESSION
  6. PENTASA [Concomitant]
     Indication: CROHN^S DISEASE
     Dosage: 500MG, 4 PILLS
  7. PRILOSEC [Concomitant]
     Indication: GASTROOESOPHAGEAL REFLUX DISEASE
  8. NASONEX [Concomitant]
  9. MULTIVITAMIN [Concomitant]

REACTIONS (3)
  - Hyperhidrosis [Not Recovered/Not Resolved]
  - Mydriasis [Not Recovered/Not Resolved]
  - Injection site pain [Not Recovered/Not Resolved]
